FAERS Safety Report 10544175 (Version 1)
Quarter: 2014Q4

REPORT INFORMATION
  Report Type: Report from Study
  Country: CN (occurrence: CN)
  Receive Date: 20141027
  Receipt Date: 20141027
  Transmission Date: 20150529
  Serious: Yes (Life-Threatening)
  Sender: FDA-Public Use
  Company Number: CN-SA-2014SA146258

PATIENT

DRUGS (8)
  1. FLUDARABINE PHOSPHATE. [Suspect]
     Active Substance: FLUDARABINE PHOSPHATE
     Dosage: 5 DAYS (-9D- -5D)
     Route: 065
  2. CYCLOPHOSPHAMIDE. [Suspect]
     Active Substance: CYCLOPHOSPHAMIDE
     Route: 065
  3. MESNA. [Concomitant]
     Active Substance: MESNA
  4. GANCICLOVIR. [Concomitant]
     Active Substance: GANCICLOVIR
  5. PHENOBARBITAL SODIUM. [Concomitant]
     Active Substance: PHENOBARBITAL SODIUM
  6. CYCLOSPORIN A [Concomitant]
     Active Substance: CYCLOSPORINE
  7. BUSULFAN [Suspect]
     Active Substance: BUSULFAN
     Dosage: -4 D - -1 DAY?BUSULFAN TABLET, 2 MG/ (KG.D)*4D?BUSULFAN FOR INJ 1.6 MG/(KG.D)* 4D
     Route: 065
  8. PROSTAGLANDIN E1 [Concomitant]
     Active Substance: ALPROSTADIL

REACTIONS (1)
  - Toxicity to various agents [Unknown]
